FAERS Safety Report 9304451 (Version 1)
Quarter: 2013Q2

REPORT INFORMATION
  Report Type: Spontaneous
  Country: GB (occurrence: GB)
  Receive Date: 20130522
  Receipt Date: 20130522
  Transmission Date: 20140414
  Serious: Yes (Other)
  Sender: FDA-Public Use
  Company Number: GB-BRISTOL-MYERS SQUIBB COMPANY-18918334

PATIENT
  Sex: Male

DRUGS (1)
  1. ABILIFY TABS [Suspect]
     Route: 064

REACTIONS (2)
  - Premature baby [Unknown]
  - Testicular torsion [Unknown]
